FAERS Safety Report 8206496-1 (Version None)
Quarter: 2012Q1

REPORT INFORMATION
  Report Type: 
  Country: None (occurrence: None)
  Receive Date: 20120313
  Receipt Date: 20120309
  Transmission Date: 20120608
  Serious: Yes (Life-Threatening)
  Sender: FDA-Public Use
  Company Number: IT-ASTRAZENECA-2012SE16557

PATIENT
  Age: 48 Year
  Sex: Male
  Weight: 87 kg

DRUGS (4)
  1. BUPIVACAINE HYPERBARIC [Suspect]
     Indication: ANAESTHESIA PROCEDURE
     Route: 037
  2. MIDAZOLAM [Concomitant]
     Indication: HYPERTENSION
     Dosage: 3MG
  3. CALCIUM CHANNEL BLOCKERS [Concomitant]
     Indication: HYPERTENSION
  4. CRYSTALLOID SOLUTION [Concomitant]
     Indication: HYPERTENSION
     Dosage: 750ML

REACTIONS (1)
  - CARDIO-RESPIRATORY DISTRESS [None]
